FAERS Safety Report 12386586 (Version 1)
Quarter: 2016Q2

REPORT INFORMATION
  Report Type: Spontaneous
  Country: US (occurrence: US)
  Receive Date: 20160519
  Receipt Date: 20160519
  Transmission Date: 20160815
  Serious: No
  Sender: FDA-Public Use
  Company Number: ADR-2015-01628

PATIENT
  Sex: Female

DRUGS (2)
  1. BACLOFEN. [Suspect]
     Active Substance: BACLOFEN
     Route: 037
     Dates: start: 2014
  2. BACLOFEN. [Suspect]
     Active Substance: BACLOFEN
     Dosage: 999.5 MCG/DAY
     Route: 037
     Dates: start: 2015

REACTIONS (2)
  - Muscle spasms [Unknown]
  - Muscle tightness [Unknown]

NARRATIVE: CASE EVENT DATE: 2014
